FAERS Safety Report 13535665 (Version 3)
Quarter: 2019Q4

REPORT INFORMATION
  Report Type: Spontaneous
  Country: IN (occurrence: IN)
  Receive Date: 20170511
  Receipt Date: 20191004
  Transmission Date: 20200122
  Serious: Yes (Death, Hospitalization, Other)
  Sender: FDA-Public Use
  Company Number: IN-PFIZER INC-2017201867

PATIENT
  Age: 51 Year
  Sex: Male
  Weight: 83.6 kg

DRUGS (1)
  1. CRIZALK [Suspect]
     Active Substance: CRIZOTINIB
     Indication: NON-SMALL CELL LUNG CANCER
     Dosage: 250 MG, 2X/DAY
     Route: 048
     Dates: start: 20160309

REACTIONS (6)
  - Diabetes mellitus [Unknown]
  - Pleural effusion [Unknown]
  - Diplegia [Unknown]
  - Neoplasm progression [Fatal]
  - Memory impairment [Unknown]
  - Asthenia [Unknown]

NARRATIVE: CASE EVENT DATE: 20170315
